FAERS Safety Report 15895213 (Version 1)
Quarter: 2019Q1

REPORT INFORMATION
  Report Type: Spontaneous
  Country: US (occurrence: US)
  Receive Date: 20190109
  Receipt Date: 20190109
  Transmission Date: 20190417
  Serious: Yes (Life-Threatening, Hospitalization)
  Sender: FDA-Public Use
  Company Number: None

PATIENT
  Age: 85 Year
  Sex: Male
  Weight: 81.65 kg

DRUGS (8)
  1. SIMVASTATIN. [Concomitant]
     Active Substance: SIMVASTATIN
  2. METOPROLOL. [Concomitant]
     Active Substance: METOPROLOL
  3. ROPINIROLE. [Concomitant]
     Active Substance: ROPINIROLE
  4. GADOLINIUM [Suspect]
     Active Substance: GADOLINIUM
     Indication: LUMBAR SPINAL STENOSIS
     Route: 042
     Dates: start: 20181119
  5. VIT B [Concomitant]
     Active Substance: VITAMIN B
  6. AZILECT [Concomitant]
     Active Substance: RASAGILINE MESYLATE
  7. CARBIDOPA-LEVODOPA [Concomitant]
     Active Substance: CARBIDOPA\LEVODOPA
  8. VITAMIN D [Concomitant]
     Active Substance: CHOLECALCIFEROL

REACTIONS (3)
  - Loss of consciousness [None]
  - Vomiting [None]
  - Contrast media reaction [None]

NARRATIVE: CASE EVENT DATE: 20181119
